FAERS Safety Report 25551923 (Version 5)
Quarter: 2025Q4

REPORT INFORMATION
  Report Type: Report from Study
  Country: CN (occurrence: CN)
  Receive Date: 20250714
  Receipt Date: 20251216
  Transmission Date: 20260117
  Serious: Yes (Other)
  Sender: ABBVIE
  Company Number: CN-ABBVIE-6368561

PATIENT
  Age: 48 Year
  Sex: Male

DRUGS (9)
  1. OZURDEX [Suspect]
     Active Substance: DEXAMETHASONE
     Indication: Diabetic retinal oedema
     Dosage: TIME INTERVAL: AS NECESSARY: STRENGTH: 700 MICROGRAM, FREQUENCY: ONCE IN THE RIGHT EYE?FREQUENCY:...
     Route: 050
     Dates: start: 20241115, end: 20241115
  2. GATIFLOXACIN [Concomitant]
     Active Substance: GATIFLOXACIN
     Indication: Infection prophylaxis
     Dosage: 1-2 DROP?FREQUENCY TEXT: QID
     Route: 047
     Dates: start: 20241114, end: 20241123
  3. RANIBIZUMAB [Concomitant]
     Active Substance: RANIBIZUMAB
     Indication: Diabetic retinopathy
     Dosage: FREQUENCY: ONCE
     Route: 031
     Dates: start: 20241222, end: 20241222
  4. RANIBIZUMAB [Concomitant]
     Active Substance: RANIBIZUMAB
     Indication: Diabetic retinopathy
     Dosage: FREQUENCY: ONCE
     Route: 031
     Dates: start: 20250909, end: 20250909
  5. DAPAGLIFLOZIN [Concomitant]
     Active Substance: DAPAGLIFLOZIN
     Indication: Type 2 diabetes mellitus
     Dosage: 1 TABLET
     Route: 048
     Dates: start: 2011
  6. METHYLCOBALAMIN [Concomitant]
     Active Substance: METHYLCOBALAMIN
     Indication: Type 2 diabetes mellitus
     Dosage: TIME INTERVAL: 0.33333333 DAYS
     Route: 048
     Dates: start: 2024
  7. KALLIDINOGENASE [Concomitant]
     Active Substance: KALLIDINOGENASE
     Indication: Type 2 diabetes mellitus
     Dosage: TIME INTERVAL: 0.33333333 DAYS: PANCREATIC KININOGENASE ENTERIC-COATED TABLETS
     Route: 048
     Dates: start: 2011
  8. METFORMIN HYDROCHLORIDE\SITAGLIPTIN PHOSPHATE [Concomitant]
     Active Substance: METFORMIN HYDROCHLORIDE\SITAGLIPTIN PHOSPHATE
     Indication: Type 2 diabetes mellitus
     Route: 048
     Dates: start: 2009
  9. CALCIUM DOBESILATE [Concomitant]
     Active Substance: CALCIUM DOBESILATE
     Indication: Type 2 diabetes mellitus
     Dosage: TIME INTERVAL: 0.33333333 DAYS
     Route: 048
     Dates: start: 2023

REACTIONS (3)
  - Retinal haemorrhage [Recovered/Resolved]
  - Intraocular pressure increased [Recovered/Resolved]
  - Intraocular pressure increased [Recovering/Resolving]

NARRATIVE: CASE EVENT DATE: 20250610
